FAERS Safety Report 10466988 (Version 1)
Quarter: 2014Q3

REPORT INFORMATION
  Report Type: Spontaneous
  Country: FR (occurrence: FR)
  Receive Date: 20140922
  Receipt Date: 20140922
  Transmission Date: 20150326
  Serious: Yes (Congenital Anomaly)
  Sender: FDA-Public Use
  Company Number: FR-SA-2014SA128018

PATIENT
  Age: 1 Day
  Sex: Female

DRUGS (5)
  1. CIRCADIN [Suspect]
     Active Substance: MELATONIN
     Route: 064
     Dates: end: 20131115
  2. ZOLPIDEM TARTRATE. [Suspect]
     Active Substance: ZOLPIDEM TARTRATE
     Route: 064
     Dates: start: 201309, end: 201311
  3. ATARAX [Suspect]
     Active Substance: HYDROXYZINE\HYDROXYZINE HYDROCHLORIDE
     Route: 064
     Dates: end: 20131115
  4. SEROPLEX [Suspect]
     Active Substance: ESCITALOPRAM OXALATE
     Route: 064
     Dates: end: 20131115
  5. LEXOMIL [Suspect]
     Active Substance: BROMAZEPAM
     Route: 064
     Dates: start: 201309, end: 201311

REACTIONS (2)
  - Exposure during pregnancy [Recovered/Resolved with Sequelae]
  - Atrioventricular septal defect [Recovered/Resolved with Sequelae]

NARRATIVE: CASE EVENT DATE: 2014
